FAERS Safety Report 14312181 (Version 1)
Quarter: 2017Q4

REPORT INFORMATION
  Report Type: Spontaneous
  Country: FR (occurrence: FR)
  Receive Date: 20171221
  Receipt Date: 20171221
  Transmission Date: 20180321
  Serious: Yes (Hospitalization)
  Sender: FDA-Public Use
  Company Number: FR-MERCK KGAA-2037531

PATIENT
  Age: 85 Year
  Sex: Female
  Weight: 55 kg

DRUGS (10)
  1. NISISCO(CO-DIOVAN) [Concomitant]
  2. NOVOTHYROX [Suspect]
     Active Substance: LEVOTHYROXINE SODIUM
     Indication: HYPOTHYROIDISM
     Route: 048
  3. ADROVANCE(FOSAVANCE) [Concomitant]
  4. PARIET [Concomitant]
     Active Substance: RABEPRAZOLE SODIUM
  5. TANAKAN [Concomitant]
     Active Substance: GINKGO
  6. EFFERALGAN [Concomitant]
     Active Substance: ACETAMINOPHEN
  7. FLUVASTATIN [Concomitant]
     Active Substance: FLUVASTATIN SODIUM
  8. KARDEGIC [Concomitant]
     Active Substance: ASPIRIN DL-LYSINE
  9. OROCAL (LEKOVIT CA) [Concomitant]
  10. BROMAZEPAM [Concomitant]
     Active Substance: BROMAZEPAM

REACTIONS (4)
  - Blood thyroid stimulating hormone normal [Recovered/Resolved]
  - Limb discomfort [Not Recovered/Not Resolved]
  - Memory impairment [Not Recovered/Not Resolved]
  - Dizziness [Not Recovered/Not Resolved]

NARRATIVE: CASE EVENT DATE: 201710
